FAERS Safety Report 8425730-6 (Version None)
Quarter: 2012Q2

REPORT INFORMATION
  Report Type: 
  Country: None (occurrence: None)
  Receive Date: 20120611
  Receipt Date: 20120607
  Transmission Date: 20120825
  Serious: Yes (Other)
  Sender: FDA-Public Use
  Company Number: PHHY2012RO039244

PATIENT
  Age: 70 Year
  Sex: Female

DRUGS (1)
  1. ZOMETA [Suspect]
     Indication: METASTASES TO BONE
     Dosage: 4 MG/5 ML CONCENTRATE FOR SOLUTION FOR INFUSION / 4MG POWDER AND SOLVENT FOR SOLUTION FOR INFUSION
     Dates: start: 20100203, end: 20101201

REACTIONS (6)
  - PAIN [None]
  - FISTULA [None]
  - PYOGENIC GRANULOMA [None]
  - EXPOSED BONE IN JAW [None]
  - OSTEONECROSIS OF JAW [None]
  - GINGIVAL INFECTION [None]
